FAERS Safety Report 4374999-6 (Version None)
Quarter: 2004Q2

REPORT INFORMATION
  Report Type: 
  Country: None (occurrence: None)
  Receive Date: 20040604
  Receipt Date: 20040525
  Transmission Date: 20050107
  Serious: Yes (Hospitalization, Other)
  Sender: FDA-Public Use
  Company Number: HQWYE109725MAY04

PATIENT
  Age: 49 Year
  Sex: Male

DRUGS (4)
  1. IBUPROFEN AND PSEUDOEPHEDRINE HCL [Suspect]
     Indication: INFLUENZA
     Dosage: TABLETS THREE TIMES DAILY ORAL
     Route: 048
     Dates: start: 20040426, end: 20040430
  2. ACETYLCYSTEINE [Concomitant]
  3. ACETAMINOPHEN [Concomitant]
  4. ZITROMAX (AZTHROMYCIN) [Concomitant]

REACTIONS (3)
  - CYTOLYTIC HEPATITIS [None]
  - HEPATITIS ACUTE [None]
  - HEPATITIS CHOLESTATIC [None]
